FAERS Safety Report 20656215 (Version 1)
Quarter: 2022Q1

REPORT INFORMATION
  Report Type: Report from Study
  Country: GR (occurrence: GR)
  Receive Date: 20220331
  Receipt Date: 20220331
  Transmission Date: 20220424
  Serious: Yes (Death, Hospitalization, Other)
  Sender: FDA-Public Use
  Company Number: GR-ABBVIE-22K-066-4338929-00

PATIENT
  Age: 64 Year
  Sex: Male
  Weight: 60 kg

DRUGS (7)
  1. CARBIDOPA\LEVODOPA [Suspect]
     Active Substance: CARBIDOPA\LEVODOPA
     Indication: Parkinson^s disease
     Dosage: MORNING DOSE: 7.8ML; CONTINUOUS RATE: 3.3ML/H; EXTRA DOSE: 1.5ML
     Route: 050
     Dates: start: 2012
  2. CARBIDOPA\LEVODOPA [Suspect]
     Active Substance: CARBIDOPA\LEVODOPA
  3. KEPPRA [Concomitant]
     Active Substance: LEVETIRACETAM
     Indication: Product used for unknown indication
     Route: 048
  4. TAVOR [Concomitant]
     Indication: Product used for unknown indication
     Route: 048
  5. ELIQUIS [Concomitant]
     Active Substance: APIXABAN
     Indication: Product used for unknown indication
     Route: 048
  6. UNIMAZOLE [Concomitant]
     Indication: Product used for unknown indication
     Dosage: HALF OF UNKNOWN DOSE
     Route: 048
  7. CLOZAPINE [Concomitant]
     Active Substance: CLOZAPINE
     Indication: Product used for unknown indication
     Route: 048

REACTIONS (3)
  - Cardiac arrest [Fatal]
  - Respiratory tract infection [Unknown]
  - Hypotension [Unknown]
